FAERS Safety Report 11871165 (Version 1)
Quarter: 2015Q4

REPORT INFORMATION
  Report Type: Spontaneous
  Country: US (occurrence: None)
  Receive Date: 20151224
  Receipt Date: 20151224
  Transmission Date: 20160305
  Serious: Yes (Other)
  Sender: FDA-Public Use
  Company Number: None

PATIENT
  Age: 82 Year
  Sex: Male
  Weight: 101.61 kg

DRUGS (14)
  1. CHOLECALCIFEROL [Concomitant]
     Active Substance: CHOLECALCIFEROL
  2. CLOBETASOL PROPIONATE. [Concomitant]
     Active Substance: CLOBETASOL PROPIONATE
  3. CYANOCOBALAMIN. [Concomitant]
     Active Substance: CYANOCOBALAMIN
  4. FUROSEMIDE. [Concomitant]
     Active Substance: FUROSEMIDE
  5. TRICINOLONE ACETONIDE [Concomitant]
  6. HYDROCONE/ACETAMINOPHEN (LORTAB) [Concomitant]
  7. METOPROLOL [Concomitant]
     Active Substance: METOPROLOL
  8. TAMSULOSIN [Concomitant]
     Active Substance: TAMSULOSIN
  9. INVANZ [Suspect]
     Active Substance: ERTAPENEM SODIUM
     Indication: KIDNEY INFECTION
     Dosage: INTO A VEIN
     Dates: start: 20151215, end: 20151222
  10. GLIZIDE [Concomitant]
     Active Substance: GLIPIZIDE
  11. MONTRLUKAST [Concomitant]
  12. NIFEDIPINE. [Concomitant]
     Active Substance: NIFEDIPINE
  13. WARFARIN [Concomitant]
     Active Substance: WARFARIN
  14. IRON [Concomitant]
     Active Substance: IRON

REACTIONS (3)
  - Abnormal dreams [None]
  - Renal disorder [None]
  - Asthenia [None]

NARRATIVE: CASE EVENT DATE: 20151215
